APPROVED DRUG PRODUCT: PENTOXIFYLLINE
Active Ingredient: PENTOXIFYLLINE
Strength: 400MG
Dosage Form/Route: TABLET, EXTENDED RELEASE;ORAL
Application: A075093 | Product #001
Applicant: IMPAX LABORATORIES INC
Approved: Aug 10, 1999 | RLD: No | RS: No | Type: DISCN